FAERS Safety Report 9505355 (Version 1)
Quarter: 2013Q1

REPORT INFORMATION
  Report Type: Spontaneous
  Country: US (occurrence: None)
  Receive Date: 20130220
  Receipt Date: 20130220
  Transmission Date: 20140127
  Serious: No
  Sender: FDA-Public Use
  Company Number: 1000041852

PATIENT
  Age: 39 Year
  Sex: Female

DRUGS (2)
  1. VIIBRYD (VILAZODONE HYDROCHLORIDE) [Suspect]
     Indication: DEPRESSION
     Dosage: (1 IN 1 D)
     Route: 048
     Dates: start: 201212
  2. OMEPRAZOLE [Suspect]
     Dosage: 1 IN 1 D
     Route: 048
     Dates: start: 20130115

REACTIONS (4)
  - Drug interaction [None]
  - Somnolence [None]
  - Negative thoughts [None]
  - Feeling abnormal [None]
